FAERS Safety Report 21143682 (Version 1)
Quarter: 2022Q3

REPORT INFORMATION
  Report Type: Spontaneous
  Country: US (occurrence: None)
  Receive Date: 20220728
  Receipt Date: 20220728
  Transmission Date: 20221026
  Serious: Yes (Life-Threatening)
  Sender: FDA-Public Use
  Company Number: None

PATIENT
  Sex: 0

DRUGS (1)
  1. IRON SUCROSE [Suspect]
     Active Substance: IRON SUCROSE

REACTIONS (4)
  - Heart rate increased [None]
  - Cardio-respiratory arrest [None]
  - General physical health deterioration [None]
  - Acidosis [None]

NARRATIVE: CASE EVENT DATE: 20220715
